FAERS Safety Report 13869396 (Version 4)
Quarter: 2018Q3

REPORT INFORMATION
  Report Type: Spontaneous
  Country: FR (occurrence: FR)
  Receive Date: 20170815
  Receipt Date: 20180921
  Transmission Date: 20181010
  Serious: Yes (Other)
  Sender: FDA-Public Use
  Company Number: FR-PFIZER INC-2017348063

PATIENT
  Age: 72 Year
  Sex: Male

DRUGS (14)
  1. LAMOTRIGINE. [Suspect]
     Active Substance: LAMOTRIGINE
     Dosage: UNK
     Route: 048
     Dates: start: 2013
  2. ESOMEPRAZOLE MAGNESIUM. [Suspect]
     Active Substance: ESOMEPRAZOLE MAGNESIUM
     Dosage: UNK
     Route: 048
     Dates: start: 201410
  3. ESIDREX [Suspect]
     Active Substance: HYDROCHLOROTHIAZIDE
     Dosage: 25 MG, DAILY
     Route: 048
     Dates: start: 201505
  4. TERALITHE [Suspect]
     Active Substance: LITHIUM CARBONATE
     Dosage: 600 MG, UNK
     Route: 048
     Dates: start: 201608
  5. MACROGOL [Suspect]
     Active Substance: POLYETHYLENE GLYCOLS
     Dosage: UNK
     Route: 048
     Dates: start: 201410
  6. SEROPLEX [Suspect]
     Active Substance: ESCITALOPRAM OXALATE
     Dosage: UNK
     Route: 048
     Dates: start: 2014, end: 20170227
  7. XEROQUEL [Suspect]
     Active Substance: QUETIAPINE FUMARATE
     Dosage: UNK
     Route: 048
     Dates: start: 2013
  8. ALDACTONE [Suspect]
     Active Substance: SPIRONOLACTONE
     Dosage: UNK
     Route: 048
     Dates: start: 201601, end: 201611
  9. ATORVASTATIN CALCIUM. [Suspect]
     Active Substance: ATORVASTATIN CALCIUM
     Dosage: 20 MG, DAILY
     Route: 048
     Dates: start: 2008
  10. TERALITHE [Suspect]
     Active Substance: LITHIUM CARBONATE
     Dosage: 400 MG, UNK
     Route: 048
     Dates: start: 201508, end: 2016
  11. TERALITHE [Suspect]
     Active Substance: LITHIUM CARBONATE
     Dosage: 800 MG, UNK
     Route: 048
     Dates: start: 2016, end: 201608
  12. KARDEGIC [Suspect]
     Active Substance: ASPIRIN DL-LYSINE
     Dosage: UNK
     Route: 048
     Dates: start: 2012
  13. PERINDOPRIL [Suspect]
     Active Substance: PERINDOPRIL
     Dosage: 2 MG, DAILY
     Route: 048
     Dates: start: 201505
  14. VERAPAMIL HYDROCHLOIRDE [Suspect]
     Active Substance: VERAPAMIL HYDROCHLORIDE
     Dosage: 240 MG, DAILY
     Route: 048
     Dates: start: 201505

REACTIONS (1)
  - Oral lichen planus [Recovering/Resolving]

NARRATIVE: CASE EVENT DATE: 201606
